FAERS Safety Report 5219196-7 (Version None)
Quarter: 2007Q1

REPORT INFORMATION
  Report Type: 
  Country: None (occurrence: None)
  Receive Date: 20070125
  Receipt Date: 20070118
  Transmission Date: 20070707
  Serious: Yes (Hospitalization, Other)
  Sender: FDA-Public Use
  Company Number: 2006PK00427

PATIENT
  Age: 24541 Day
  Sex: Male
  Weight: 76 kg

DRUGS (3)
  1. ZD1839 [Suspect]
     Indication: TRANSITIONAL CELL CARCINOMA
     Route: 048
     Dates: start: 20051216
  2. GEMCITABINE [Suspect]
     Indication: TRANSITIONAL CELL CARCINOMA
     Dosage: 6 CYCLE
     Route: 042
     Dates: start: 20051216
  3. CISPLATIN [Suspect]
     Indication: TRANSITIONAL CELL CARCINOMA
     Dosage: 3 CYCLE
     Route: 042
     Dates: start: 20051216

REACTIONS (1)
  - ANAEMIA [None]
